FAERS Safety Report 4619706-4 (Version None)
Quarter: 2005Q1

REPORT INFORMATION
  Report Type: 
  Country: None (occurrence: None)
  Receive Date: 20050317
  Receipt Date: 20050317
  Transmission Date: 20050727
  Serious: Yes (Other)
  Sender: FDA-Public Use
  Company Number: None

PATIENT
  Age: 83 Year
  Sex: Female
  Weight: 64.4108 kg

DRUGS (8)
  1. KETEK [Suspect]
     Indication: BRONCHITIS ACUTE
     Dosage: 400 MG 2 DAILY
     Dates: start: 20050221, end: 20050222
  2. KETEK [Suspect]
     Indication: PNEUMONIA
     Dosage: 400 MG 2 DAILY
     Dates: start: 20050221, end: 20050222
  3. PREMARIN [Concomitant]
  4. MAXZIDE [Concomitant]
  5. LIBRIUM [Concomitant]
  6. WEXIUM [Concomitant]
  7. VIT E [Concomitant]
  8. MOTRIN [Concomitant]

REACTIONS (8)
  - ASTHENIA [None]
  - BEDRIDDEN [None]
  - COORDINATION ABNORMAL [None]
  - DELIRIUM [None]
  - DYSGEUSIA [None]
  - INSOMNIA [None]
  - PAROSMIA [None]
  - VISUAL ACUITY REDUCED [None]
